FAERS Safety Report 8025193-9 (Version None)
Quarter: 2012Q1

REPORT INFORMATION
  Report Type: 
  Country: None (occurrence: None)
  Receive Date: 20120105
  Receipt Date: 20111227
  Transmission Date: 20120608
  Serious: Yes (Other)
  Sender: FDA-Public Use
  Company Number: JP-GLAXOSMITHKLINE-B0765586A

PATIENT
  Sex: Female

DRUGS (12)
  1. LAMICTAL [Suspect]
     Indication: BIPOLAR I DISORDER
     Dosage: 25MG PER DAY
     Route: 048
     Dates: start: 20111018, end: 20111023
  2. LAMICTAL [Suspect]
     Dosage: 50MG PER DAY
     Route: 048
     Dates: start: 20111024, end: 20111030
  3. LAMICTAL [Suspect]
     Dosage: 100MG PER DAY
     Route: 048
     Dates: start: 20111107, end: 20111113
  4. ZOLPIDEM [Concomitant]
     Dosage: 5MG PER DAY
     Route: 048
  5. PRAVASTATIN SODIUM [Concomitant]
     Indication: HYPERLIPIDAEMIA
     Dosage: 10MG PER DAY
     Route: 048
  6. LITHIUM CARBONATE [Concomitant]
     Indication: BIPOLAR I DISORDER
     Dosage: 400MG PER DAY
     Route: 048
  7. ZYPREXA [Concomitant]
     Indication: BIPOLAR I DISORDER
     Dosage: 5MG PER DAY
     Route: 048
  8. LAMICTAL [Suspect]
     Dosage: 150MG PER DAY
     Route: 048
     Dates: start: 20111121, end: 20111123
  9. LAMICTAL [Suspect]
     Dosage: 125MG PER DAY
     Route: 048
     Dates: start: 20111114, end: 20111120
  10. AMLODIPINE [Concomitant]
     Indication: HYPERTENSION
     Dosage: 5MG PER DAY
     Route: 048
  11. LAMICTAL [Suspect]
     Dosage: 75MG PER DAY
     Route: 048
     Dates: start: 20111031, end: 20111106
  12. ROHYPNOL [Concomitant]
     Dosage: 1MG PER DAY
     Route: 048

REACTIONS (3)
  - RASH [None]
  - DRUG ERUPTION [None]
  - RASH GENERALISED [None]
